FAERS Safety Report 7018083-1 (Version None)
Quarter: 2010Q3

REPORT INFORMATION
  Report Type: 
  Country: None (occurrence: None)
  Receive Date: 20100922
  Receipt Date: 20060410
  Transmission Date: 20110219
  Serious: Yes (Other)
  Sender: FDA-Public Use
  Company Number: NO-SEPTODONT-200600036

PATIENT
  Age: 37 Year
  Sex: Female

DRUGS (1)
  1. SEPTANEST (ARTICAINE HCL 4% WITH EPINEPHRINE 1:200,000 INJECTION) [Suspect]
     Indication: LOCAL ANAESTHESIA
     Dosage: 1.8 ML DENTAL
     Route: 004
     Dates: start: 20060301

REACTIONS (5)
  - COLD SWEAT [None]
  - DIZZINESS [None]
  - DYSPNOEA [None]
  - NAUSEA [None]
  - PALLOR [None]
